FAERS Safety Report 18766481 (Version 1)
Quarter: 2021Q1

REPORT INFORMATION
  Report Type: Spontaneous
  Country: CA (occurrence: CA)
  Receive Date: 20210121
  Receipt Date: 20210121
  Transmission Date: 20210419
  Serious: Yes (Hospitalization)
  Sender: FDA-Public Use
  Company Number: CA-ACCORD-214744

PATIENT
  Age: 53 Year
  Sex: Female
  Weight: 74 kg

DRUGS (16)
  1. FILGRASTIM [Concomitant]
     Active Substance: FILGRASTIM
     Indication: CYTOPENIA
     Route: 065
  2. GRANISETRON [Concomitant]
     Active Substance: GRANISETRON
     Indication: ANTIEMETIC SUPPORTIVE CARE
     Route: 048
  3. DEXAMETHASONE. [Concomitant]
     Active Substance: DEXAMETHASONE
     Indication: ANTIEMETIC SUPPORTIVE CARE
     Dosage: FREQUENCY: 1 EVERY 6 HOURS
     Route: 048
  4. PACLITAXEL/PACLITAXEL LIPOSOME [Suspect]
     Active Substance: PACLITAXEL
     Indication: PRODUCT USED FOR UNKNOWN INDICATION
     Dosage: FREQUENCY: 1 EVERY 2 WEEKS
     Route: 042
  5. LAPELGA [Suspect]
     Active Substance: PEGFILGRASTIM
     Indication: PROPHYLAXIS
     Route: 058
  6. APREPITANT. [Concomitant]
     Active Substance: APREPITANT
     Indication: ANTIEMETIC SUPPORTIVE CARE
     Dosage: FREQUENCY: 1 EVERY 24 HOURS
     Route: 048
  7. DOXORUBICIN [Concomitant]
     Active Substance: DOXORUBICIN
     Indication: BREAST CANCER
     Dosage: FREQUENCY: 1 EVERY 2 WEEKS
     Route: 042
  8. TAXOL [Concomitant]
     Active Substance: PACLITAXEL
     Indication: CYTOPENIA
     Route: 065
  9. DEXAMETHASONE. [Concomitant]
     Active Substance: DEXAMETHASONE
     Indication: ANTIEMETIC SUPPORTIVE CARE
     Dosage: FREQUENCY: 1 EVERY 12 HOURS
     Route: 048
  10. CURCUMIN [Concomitant]
     Active Substance: CURCUMIN
     Indication: SUPPLEMENTATION THERAPY
     Dosage: FREQUENCY: 1 EVERY 24 HOURS
     Route: 065
  11. D?ALPHA [Concomitant]
     Active Substance: ALFACALCIDOL
     Indication: SUPPLEMENTATION THERAPY
     Dosage: FREQUENCY: 1 EVERY 24 HOURS
     Route: 065
  12. OLANZAPINE. [Concomitant]
     Active Substance: OLANZAPINE
     Indication: PRODUCT USED FOR UNKNOWN INDICATION
     Route: 065
  13. CYCLOPHOSPHAMIDE/CYCLOPHOSPHAMIDE MONOHYDRATE [Concomitant]
     Active Substance: CYCLOPHOSPHAMIDE
     Indication: BREAST CANCER
     Dosage: FREQUENCY: 1 EVERY 2 WEEKS
     Route: 042
  14. DEXAMETHASONE. [Concomitant]
     Active Substance: DEXAMETHASONE
     Indication: ANTIEMETIC SUPPORTIVE CARE
     Route: 048
  15. APREPITANT. [Concomitant]
     Active Substance: APREPITANT
     Indication: ANTIEMETIC SUPPORTIVE CARE
     Route: 048
  16. DEXAMETHASONE. [Concomitant]
     Active Substance: DEXAMETHASONE
     Indication: ANTIEMETIC SUPPORTIVE CARE
     Dosage: FREQUENCY: 1 EVERY 24 HOURS
     Route: 048

REACTIONS (2)
  - Product substitution issue [Unknown]
  - Pneumonitis [Recovered/Resolved]
